FAERS Safety Report 18129500 (Version 1)
Quarter: 2020Q3

REPORT INFORMATION
  Report Type: Spontaneous
  Country: US (occurrence: US)
  Receive Date: 20200810
  Receipt Date: 20200810
  Transmission Date: 20201103
  Serious: Yes (Other)
  Sender: FDA-Public Use
  Company Number: None

PATIENT
  Age: 25 Year
  Sex: Female
  Weight: 69.75 kg

DRUGS (3)
  1. LYSINE [Concomitant]
     Active Substance: LYSINE
  2. BIOTIN [Concomitant]
     Active Substance: BIOTIN
  3. LORYNA [Suspect]
     Active Substance: DROSPIRENONE\ETHINYL ESTRADIOL
     Route: 048
     Dates: start: 20200805

REACTIONS (10)
  - Arthralgia [None]
  - Eye pain [None]
  - Depression [None]
  - Fatigue [None]
  - Bedridden [None]
  - Dizziness [None]
  - Myalgia [None]
  - Mood altered [None]
  - Decreased appetite [None]
  - Migraine [None]

NARRATIVE: CASE EVENT DATE: 20200809
